FAERS Safety Report 5609709-5 (Version None)
Quarter: 2008Q1

REPORT INFORMATION
  Report Type: 
  Country: None (occurrence: None)
  Receive Date: 20080131
  Receipt Date: 20080128
  Transmission Date: 20080703
  Serious: Yes (Life-Threatening, Hospitalization, Disabling, Other)
  Sender: FDA-Public Use
  Company Number: B0505698A

PATIENT
  Age: 67 Year
  Sex: Male
  Weight: 100.5 kg

DRUGS (6)
  1. ROSIGLITAZONE [Suspect]
     Dosage: 4MG PER DAY
     Route: 048
     Dates: start: 20030220, end: 20080126
  2. ACERCOMP [Concomitant]
     Dosage: 16MG PER DAY
     Route: 048
     Dates: start: 20030114
  3. HYPOTHIAZID [Concomitant]
     Dosage: 25MG PER DAY
     Route: 048
     Dates: start: 20030114
  4. ASPECARD [Concomitant]
     Dosage: 100MG PER DAY
     Route: 048
     Dates: start: 20030114
  5. QUINAX [Concomitant]
     Route: 061
     Dates: start: 20030115
  6. EGILOK [Concomitant]
     Indication: VENTRICULAR EXTRASYSTOLES
     Dosage: 25MG PER DAY
     Route: 048
     Dates: start: 20030120

REACTIONS (7)
  - ASTHENIA [None]
  - ATRIAL FIBRILLATION [None]
  - BRADYCARDIA [None]
  - COUGH [None]
  - DYSPNOEA AT REST [None]
  - DYSPNOEA EXERTIONAL [None]
  - OEDEMA PERIPHERAL [None]
